FAERS Safety Report 8874826 (Version 1)
Quarter: 2012Q4

REPORT INFORMATION
  Report Type: 
  Country: US (occurrence: US)
  Receive Date: 20121026
  Receipt Date: 20121026
  Transmission Date: 20130627
  Serious: No
  Sender: FDA-Public Use
  Company Number: US-AMGEN-USASP2012042525

PATIENT
  Sex: Female
  Weight: 108 kg

DRUGS (10)
  1. ENBREL [Suspect]
     Indication: PRODUCT USED FOR UNKNOWN INDICATION
     Dosage: 50 mg, qwk
     Route: 058
  2. XANAX [Concomitant]
     Dosage: 0.25 mg, UNK
  3. MELOXICAM [Concomitant]
     Dosage: 7.5 mg, UNK
  4. METHOTREXATE [Concomitant]
     Dosage: 2.5 mg, UNK
  5. TRAMADOL HCL [Concomitant]
     Dosage: 50 mg, UNK
  6. ATENOLOL [Concomitant]
     Dosage: 25 mg, UNK
  7. LISINOPRIL [Concomitant]
     Dosage: 2.5 mg, UNK
  8. HYDROCHLOROTH [Concomitant]
     Dosage: 12.5 mg, UNK
  9. TETRACYCLINE [Concomitant]
     Dosage: 250 mg, UNK
  10. FOLIC ACID [Concomitant]
     Dosage: 5 mg, UNK

REACTIONS (2)
  - Oedema peripheral [Unknown]
  - Joint swelling [Unknown]
